FAERS Safety Report 5499988-X (Version None)
Quarter: 2007Q4

REPORT INFORMATION
  Report Type: 
  Country: None (occurrence: None)
  Receive Date: 20071026
  Receipt Date: 20071016
  Transmission Date: 20080405
  Serious: Yes (Other)
  Sender: FDA-Public Use
  Company Number: IE-PFIZER INC-2007087220

PATIENT
  Age: 48 Year
  Sex: Female

DRUGS (5)
  1. ISTIN [Suspect]
     Indication: HYPERTENSION
     Route: 048
  2. ACETYLSALICYLIC ACID SRT [Concomitant]
  3. AMITRIPTYLINE HCL [Concomitant]
  4. DETRUSITOL [Concomitant]
  5. ALPRENOLOL [Concomitant]

REACTIONS (1)
  - ERYTHROMELALGIA [None]
